FAERS Safety Report 20581900 (Version 1)
Quarter: 2022Q1

REPORT INFORMATION
  Report Type: Report from Study
  Country: JP (occurrence: JP)
  Receive Date: 20220311
  Receipt Date: 20220311
  Transmission Date: 20220423
  Serious: Yes (Death)
  Sender: FDA-Public Use
  Company Number: JP-CHUGAI-2022007715AA

PATIENT
  Age: 75 Year
  Sex: Female

DRUGS (2)
  1. BEVACIZUMAB [Suspect]
     Active Substance: BEVACIZUMAB
     Indication: Colorectal adenocarcinoma
     Dosage: UNK
     Route: 041
     Dates: start: 20200924, end: 20201203
  2. TIPIRACIL HYDROCHLORIDE\TRIFLURIDINE [Concomitant]
     Active Substance: TIPIRACIL HYDROCHLORIDE\TRIFLURIDINE
     Indication: Colorectal adenocarcinoma
     Dosage: UNK
     Route: 048
     Dates: start: 20200924, end: 20201203

REACTIONS (1)
  - Death [Fatal]

NARRATIVE: CASE EVENT DATE: 20210418
